FAERS Safety Report 10255462 (Version 1)
Quarter: 2014Q2

REPORT INFORMATION
  Report Type: Report from Study
  Country: US (occurrence: US)
  Receive Date: 20140624
  Receipt Date: 20140624
  Transmission Date: 20141212
  Serious: Yes (Hospitalization)
  Sender: FDA-Public Use
  Company Number: US-PFIZER INC-2014170392

PATIENT
  Age: 63 Year
  Sex: Male
  Weight: 83.4 kg

DRUGS (14)
  1. DOXORUBICIN HCL [Suspect]
     Indication: LEIOMYOSARCOMA METASTATIC
     Dosage: 42 MG/M2 CYCLE #5
     Route: 042
     Dates: start: 20120912, end: 20120912
  2. DOXORUBICIN HCL [Suspect]
     Dosage: UNK
     Route: 042
     Dates: start: 20120606
  3. FENTANYL [Concomitant]
     Dosage: UNK
     Dates: start: 20120830
  4. OXYCODONE [Concomitant]
     Dosage: UNK
     Dates: start: 20120302
  5. NEURONTIN [Concomitant]
     Dosage: UNK
     Dates: start: 20120815
  6. ELAVIL [Concomitant]
     Dosage: UNK
     Dates: start: 20120906
  7. EFFEXOR [Concomitant]
     Dosage: UNK
     Dates: start: 20120711
  8. DAKIN^S SOLUTION [Concomitant]
     Dosage: UNK
     Dates: start: 20120906
  9. FERROUS SULFATE [Concomitant]
     Dosage: UNK
     Dates: start: 20120815
  10. MULTIVITAMIN [Concomitant]
     Dosage: UNK
     Dates: start: 20111010
  11. LEVAQUIN [Concomitant]
     Dosage: UNK
     Dates: start: 20120912, end: 20120921
  12. LORAZEPAM [Concomitant]
     Dosage: UNK
     Dates: start: 20120613
  13. COMPAZINE [Concomitant]
     Dosage: UNK
     Dates: start: 20120718
  14. ZOFRAN [Concomitant]
     Dosage: UNK
     Dates: start: 20120701

REACTIONS (1)
  - Lung infection [Recovered/Resolved]
